FAERS Safety Report 8483815-2 (Version None)
Quarter: 2012Q3

REPORT INFORMATION
  Report Type: 
  Country: None (occurrence: None)
  Receive Date: 20120703
  Receipt Date: 20120628
  Transmission Date: 20120928
  Serious: No
  Sender: FDA-Public Use
  Company Number: US-BIOGENIDEC-2012BI022972

PATIENT
  Sex: Female

DRUGS (6)
  1. TYSABRI [Suspect]
     Route: 042
     Dates: start: 20090202, end: 20100107
  2. AVONEX [Concomitant]
     Indication: MULTIPLE SCLEROSIS
     Route: 030
  3. TYSABRI [Suspect]
     Indication: MULTIPLE SCLEROSIS
     Route: 042
     Dates: start: 20050201
  4. TYSABRI [Suspect]
     Route: 042
     Dates: start: 20120525
  5. TYSABRI [Suspect]
     Route: 042
     Dates: start: 20061115, end: 20080424
  6. TYSABRI [Suspect]
     Route: 042
     Dates: start: 20101210, end: 20110113

REACTIONS (3)
  - ASTHENIA [None]
  - HYPOAESTHESIA [None]
  - PARAESTHESIA [None]
